FAERS Safety Report 9997682 (Version 1)
Quarter: 2014Q1

REPORT INFORMATION
  Report Type: Spontaneous
  Country: FR (occurrence: FR)
  Receive Date: 20140311
  Receipt Date: 20140311
  Transmission Date: 20141002
  Serious: Yes (Other)
  Sender: FDA-Public Use
  Company Number: FR-TEVA-465736ISR

PATIENT
  Age: 44 Year
  Sex: Female

DRUGS (4)
  1. LEELOO 0.1MG/0.02MG [Suspect]
     Indication: ORAL CONTRACEPTION
     Dosage: 1 DOSAGE FORMS DAILY; 1 DF/DAY DURING 21 DAYS IN A 28 DAY LIFE-CYCLE
     Route: 048
     Dates: start: 2005, end: 2012
  2. TRINORDIOL [Suspect]
     Indication: ORAL CONTRACEPTION
     Dosage: SINCE SHE WAS 18 YEARS OLD
     Route: 048
     Dates: end: 2005
  3. CERAZETTE [Suspect]
     Dosage: 1 DF/DAY DURING 28 DAYS IN A 28 DAY LIFE-CYCLE
     Route: 048
     Dates: start: 2012, end: 2013
  4. DEPAKINE CHRONO 500MG [Suspect]
     Indication: IDIOPATHIC GENERALISED EPILEPSY
     Dosage: 2000 MILLIGRAM DAILY; FILM COATED DIVISIBLE EXTENDED RELEASE TABLET
     Route: 048
     Dates: start: 1980

REACTIONS (1)
  - Nodular regenerative hyperplasia [Not Recovered/Not Resolved]
